FAERS Safety Report 8007596-1 (Version None)
Quarter: 2011Q4

REPORT INFORMATION
  Report Type: 
  Country: None (occurrence: None)
  Receive Date: 20111222
  Receipt Date: 20111222
  Transmission Date: 20120403
  Serious: Yes (Hospitalization)
  Sender: FDA-Public Use
  Company Number: None

PATIENT
  Sex: Female

DRUGS (3)
  1. BONIVA [Suspect]
  2. ACTONEL [Suspect]
  3. FOSAMAX [Suspect]
     Indication: OSTEOPOROSIS

REACTIONS (1)
  - FALL [None]
